FAERS Safety Report 23903963 (Version 1)
Quarter: 2024Q2

REPORT INFORMATION
  Report Type: Spontaneous
  Country: AU (occurrence: AU)
  Receive Date: 20240527
  Receipt Date: 20240527
  Transmission Date: 20240716
  Serious: Yes (Life-Threatening, Hospitalization, Other)
  Sender: FDA-Public Use
  Company Number: AU-TGA-0000806024

PATIENT
  Age: 54 Year
  Sex: Male

DRUGS (21)
  1. CYCLOSPORINE [Suspect]
     Active Substance: CYCLOSPORINE
     Indication: Immunosuppression
     Dosage: UNK
     Route: 065
  2. TACROLIMUS [Suspect]
     Active Substance: TACROLIMUS
     Indication: Immunosuppression
     Dosage: 3 MG, QD (AT 3 MG IN MORNING)
     Route: 065
  3. TACROLIMUS [Suspect]
     Active Substance: TACROLIMUS
     Dosage: 2 MG, QD (2 MG IN NIGHT)
     Route: 065
  4. RITUXIMAB [Suspect]
     Active Substance: RITUXIMAB
     Indication: Immunosuppression
     Dosage: UNK
     Route: 065
  5. SIROLIMUS [Suspect]
     Active Substance: SIROLIMUS
     Indication: Immunosuppression
     Dosage: UNK
     Route: 065
  6. ROMIDEPSIN [Suspect]
     Active Substance: ROMIDEPSIN
     Indication: Immunosuppression
     Dosage: UNK
     Route: 065
  7. IMMUNE GLOBULIN NOS [Suspect]
     Active Substance: IMMUNE GLOBULIN NOS
     Indication: Immunosuppression
     Dosage: 30 MG, QMO
     Route: 065
  8. PREDNISONE [Suspect]
     Active Substance: PREDNISONE
     Indication: Immunosuppression
     Dosage: 20 MG, QD
     Route: 065
  9. SULFAMETHOXAZOLE\TRIMETHOPRIM [Concomitant]
     Active Substance: SULFAMETHOXAZOLE\TRIMETHOPRIM
     Indication: Gastrooesophageal reflux disease
     Dosage: UNK
     Route: 065
  10. AZITHROMYCIN [Concomitant]
     Active Substance: AZITHROMYCIN
     Indication: Gastrooesophageal reflux disease
     Dosage: 500 MG, QD
     Route: 065
  11. SERETIDE [Concomitant]
     Active Substance: FLUTICASONE PROPIONATE\SALMETEROL XINAFOATE
     Indication: Gastrooesophageal reflux disease
     Dosage: 2 DOSE UNSPECIFIED
     Route: 065
  12. TRAMADOL [Concomitant]
     Active Substance: TRAMADOL\TRAMADOL HYDROCHLORIDE
     Indication: Gastrooesophageal reflux disease
     Dosage: UNK
     Route: 065
  13. OXYCONTIN [Concomitant]
     Active Substance: OXYCODONE HYDROCHLORIDE
     Indication: Gastrooesophageal reflux disease
     Dosage: 10 MG, QD
     Route: 065
  14. PREGABALIN [Concomitant]
     Active Substance: PREGABALIN
     Indication: Gastrooesophageal reflux disease
     Dosage: 450 MG, QD
     Route: 065
  15. PANTOPRAZOLE [Concomitant]
     Active Substance: PANTOPRAZOLE
     Indication: Gastrooesophageal reflux disease
     Dosage: UNK
     Route: 065
  16. CITALOPRAM [Concomitant]
     Active Substance: CITALOPRAM\CITALOPRAM HYDROBROMIDE
     Indication: Gastrooesophageal reflux disease
     Dosage: UNK
     Route: 065
  17. FOLIC ACID [Concomitant]
     Active Substance: FOLIC ACID
     Indication: Gastrooesophageal reflux disease
     Dosage: 5 MG, QD
     Route: 065
  18. MAGNESIUM ASPARTATE [Concomitant]
     Active Substance: MAGNESIUM ASPARTATE
     Indication: Gastrooesophageal reflux disease
     Dosage: 3000 MG, QD
     Route: 065
  19. CHOLECALCIFEROL [Concomitant]
     Active Substance: CHOLECALCIFEROL
     Indication: Gastrooesophageal reflux disease
     Dosage: 1000 IU INTERNATIONAL UNIT(S), QD
     Route: 065
  20. ZOLEDRONIC ACID [Concomitant]
     Active Substance: ZOLEDRONIC ACID
     Indication: Product used for unknown indication
     Dosage: 5 MG
     Route: 065
  21. FELODIPINE [Concomitant]
     Active Substance: FELODIPINE
     Indication: Product used for unknown indication
     Dosage: 2.5 MG
     Route: 065

REACTIONS (2)
  - Condition aggravated [Unknown]
  - Drug ineffective [Unknown]
